FAERS Safety Report 8508143-8 (Version None)
Quarter: 2012Q3

REPORT INFORMATION
  Report Type: 
  Country: None (occurrence: None)
  Receive Date: 20120713
  Receipt Date: 20120711
  Transmission Date: 20120928
  Serious: Yes (Hospitalization)
  Sender: FDA-Public Use
  Company Number: US-AMGEN-USASP2012042963

PATIENT
  Age: 53 Year
  Sex: Male

DRUGS (2)
  1. ENBREL [Suspect]
     Indication: ERYTHRODERMIC PSORIASIS
  2. ENBREL [Suspect]
     Indication: PSORIATIC ARTHROPATHY
     Dosage: 50 MG, UNK
     Route: 058
     Dates: start: 20050802, end: 20111111

REACTIONS (6)
  - THROMBOSIS [None]
  - HIP FRACTURE [None]
  - ERYTHRODERMIC PSORIASIS [None]
  - JOINT STIFFNESS [None]
  - HYPERGLYCAEMIA [None]
  - ACCIDENT [None]
